FAERS Safety Report 5976925-2 (Version None)
Quarter: 2008Q4

REPORT INFORMATION
  Report Type: 
  Country: None (occurrence: None)
  Receive Date: 20081203
  Receipt Date: 20081125
  Transmission Date: 20090506
  Serious: Yes (Other)
  Sender: FDA-Public Use
  Company Number: JP-SP-2008-03787

PATIENT

DRUGS (1)
  1. IMMUCYST [Suspect]
     Route: 043
     Dates: start: 20070101

REACTIONS (1)
  - TUBERCULOSIS [None]
